FAERS Safety Report 10037505 (Version 1)
Quarter: 2014Q1

REPORT INFORMATION
  Report Type: Spontaneous
  Country: US (occurrence: None)
  Receive Date: 20140324
  Receipt Date: 20140324
  Transmission Date: 20141002
  Serious: Yes (Other)
  Sender: FDA-Public Use
  Company Number: 001687324A

PATIENT
  Age: 15 Year
  Sex: Female

DRUGS (5)
  1. PROACTIV SOLUTION RENEWING CLEANSER [Suspect]
     Indication: ACNE
     Route: 061
     Dates: start: 20131030, end: 20131031
  2. PROACTIV SOLUTION REPAIRING TREATMENT [Suspect]
     Indication: ACNE
     Route: 061
     Dates: start: 20131030, end: 20131031
  3. PROACTIV SPF 15 MOISTURIZER [Suspect]
     Indication: ACNE
     Route: 061
     Dates: start: 20131030, end: 20131031
  4. PROACTIV SOLUTION ADVANCED DAILY OIL CONTROL [Suspect]
     Indication: ACNE
     Route: 061
     Dates: start: 20131030, end: 20131031
  5. PROACTIV SOLUTION REFINING MASK [Suspect]
     Indication: ACNE
     Route: 061
     Dates: start: 20131030, end: 20131031

REACTIONS (8)
  - Urticaria [None]
  - Crying [None]
  - Erythema [None]
  - Hyperventilation [None]
  - Dyspnoea [None]
  - Burning sensation [None]
  - Anxiety [None]
  - Respiratory disorder [None]
